FAERS Safety Report 12887945 (Version 1)
Quarter: 2016Q4

REPORT INFORMATION
  Report Type: Spontaneous
  Country: FR (occurrence: FR)
  Receive Date: 20161027
  Receipt Date: 20161027
  Transmission Date: 20170207
  Serious: Yes (Life-Threatening, Hospitalization, Other)
  Sender: FDA-Public Use
  Company Number: FR-ASTRAZENECA-2016SF11551

PATIENT
  Age: 22324 Day
  Sex: Female

DRUGS (24)
  1. ALLOPURINOL. [Concomitant]
     Active Substance: ALLOPURINOL
     Dosage: 200 MG/D
  2. CEFAZOLINE [Suspect]
     Active Substance: CEFAZOLIN SODIUM
     Indication: ENDOCARDITIS
     Dosage: 1.5G BID
     Route: 065
     Dates: start: 20160830
  3. INEXIUM IV [Suspect]
     Active Substance: ESOMEPRAZOLE
     Dosage: 40 MG
     Route: 042
  4. ACUPAN [Suspect]
     Active Substance: NEFOPAM HYDROCHLORIDE
     Indication: PAIN
     Route: 048
  5. LEVOFLOXACIN. [Suspect]
     Active Substance: LEVOFLOXACIN
     Indication: ENDOCARDITIS
     Dosage: 125MG IV
     Route: 042
     Dates: start: 20160908
  6. ONDANSETRON [Suspect]
     Active Substance: ONDANSETRON
     Indication: NAUSEA
     Dosage: 8MGDAILY
     Route: 048
  7. BISOPROLOL [Concomitant]
     Active Substance: BISOPROLOL
     Dosage: 7.5MG/D,
  8. INSULIN [Concomitant]
     Active Substance: INSULIN NOS
     Dosage: 50 IU IN THE MORNING,27IU AT NOON, 36 IU IN THE EVENING
  9. INEXIUM [Suspect]
     Active Substance: ESOMEPRAZOLE
     Indication: PROPHYLAXIS
     Route: 048
  10. INEXIUM IV [Suspect]
     Active Substance: ESOMEPRAZOLE
     Dosage: 80 MG, DAILY
     Route: 042
  11. ALPHA-HYDROXYCHOLECALCIFEROL [Concomitant]
     Dosage: 1 MICROG/D
  12. CEFAZOLINE [Suspect]
     Active Substance: CEFAZOLIN SODIUM
     Indication: ENDOCARDITIS
     Dosage: 1G
     Route: 065
     Dates: start: 20160908
  13. LEVOFLOXACIN. [Suspect]
     Active Substance: LEVOFLOXACIN
     Indication: ENDOCARDITIS
     Route: 042
     Dates: end: 20160802
  14. ROSUVASTATINE [Concomitant]
     Active Substance: ROSUVASTATIN
     Dosage: 10MG/D
  15. PREGABALINE [Concomitant]
     Active Substance: PREGABALIN
     Dosage: 75MG BID
  16. CEFAZOLINE [Suspect]
     Active Substance: CEFAZOLIN SODIUM
     Indication: ENDOCARDITIS
     Dosage: 2 G TID
     Route: 065
     Dates: start: 20160830
  17. CEFAZOLINE [Suspect]
     Active Substance: CEFAZOLIN SODIUM
     Indication: ENDOCARDITIS
     Dosage: 374 MG/
     Route: 065
     Dates: start: 20160906
  18. FUROSEMIDE. [Concomitant]
     Active Substance: FUROSEMIDE
     Dosage: 40MG BID,
  19. RAMIPRIL. [Concomitant]
     Active Substance: RAMIPRIL
     Dosage: 10 MG/D
  20. FERROUS SULFATE. [Concomitant]
     Active Substance: FERROUS SULFATE
     Dosage: 80 MG/D
  21. CEFAZOLINE [Suspect]
     Active Substance: CEFAZOLIN SODIUM
     Indication: ENDOCARDITIS
     Route: 065
     Dates: end: 20160802
  22. ONDANSETRON [Suspect]
     Active Substance: ONDANSETRON
     Indication: NAUSEA
     Dosage: 8MG FOUR TIMES PER DAY
     Route: 048
  23. INSULINE NPH [Concomitant]
     Active Substance: INSULIN PORK\INSULIN PURIFIED PORK
     Dosage: 38IU IN THE MORNING AND 40 IU IN THE EVENING
  24. LEVOFLOXACIN. [Suspect]
     Active Substance: LEVOFLOXACIN
     Indication: ENDOCARDITIS
     Dosage: 1 INJECTION OF 500 MG
     Route: 042
     Dates: start: 20160905

REACTIONS (14)
  - Staphylococcal infection [Recovered/Resolved]
  - Cerebral haemorrhage [Unknown]
  - Status epilepticus [Recovered/Resolved]
  - Septic shock [Recovered/Resolved]
  - Vasculitis necrotising [Recovered/Resolved]
  - Skin infection [Unknown]
  - Blood creatinine increased [Recovered/Resolved]
  - Vomiting [Recovered/Resolved]
  - Endocarditis staphylococcal [Recovered/Resolved]
  - Septic embolus [Recovered/Resolved]
  - Postictal state [Recovered/Resolved]
  - Electroencephalogram abnormal [Recovered/Resolved]
  - Cerebral ischaemia [Unknown]
  - Brain abscess [Recovered/Resolved]

NARRATIVE: CASE EVENT DATE: 20160617
